FAERS Safety Report 14211918 (Version 1)
Quarter: 2017Q4

REPORT INFORMATION
  Report Type: Spontaneous
  Country: US (occurrence: US)
  Receive Date: 20171121
  Receipt Date: 20171121
  Transmission Date: 20180321
  Serious: No
  Sender: FDA-Public Use
  Company Number: US-LEADIANT BIOSCIENCES INC-2016STPI000817

PATIENT
  Age: 12 Year
  Sex: Female

DRUGS (8)
  1. INDOMETHACIN                       /00003801/ [Concomitant]
     Active Substance: INDOMETHACIN
  2. NUTROPIN AQ [Concomitant]
     Active Substance: SOMATROPIN
  3. VITAMIN D                          /00107901/ [Concomitant]
     Active Substance: ERGOCALCIFEROL
  4. POTASSIUM CHLORIDE. [Concomitant]
     Active Substance: POTASSIUM CHLORIDE
  5. CYSTARAN [Suspect]
     Active Substance: CYSTEAMINE HYDROCHLORIDE
     Indication: CORNEAL DEPOSITS
     Dosage: 1 GTT, Q2H
     Route: 047
     Dates: start: 20140815
  6. CALCITRIOL. [Concomitant]
     Active Substance: CALCITRIOL
  7. NEUTRA PHOS K [Concomitant]
     Active Substance: POTASSIUM PHOSPHATE, DIBASIC\POTASSIUM PHOSPHATE, MONOBASIC
  8. PROCYSBI [Concomitant]
     Active Substance: CYSTEAMINE BITARTRATE

REACTIONS (1)
  - Eye pain [Unknown]

NARRATIVE: CASE EVENT DATE: 201609
